FAERS Safety Report 9330646 (Version 1)
Quarter: 2013Q2

REPORT INFORMATION
  Report Type: Report from Study
  Country: BR (occurrence: BR)
  Receive Date: 20130605
  Receipt Date: 20130605
  Transmission Date: 20140414
  Serious: Yes (Life-Threatening, Hospitalization, Other)
  Sender: FDA-Public Use
  Company Number: BR-ROCHE-1230367

PATIENT
  Age: 40 Year
  Sex: Female
  Weight: 61.06 kg

DRUGS (4)
  1. XOLAIR [Suspect]
     Indication: ASTHMA
     Dosage: ONE AMPOULE
     Route: 065
     Dates: end: 2009
  2. XOLAIR [Suspect]
     Route: 065
  3. XOLAIR [Suspect]
     Route: 065
  4. SERETIDE [Concomitant]

REACTIONS (4)
  - Apparent death [Not Recovered/Not Resolved]
  - Pneumonia [Not Recovered/Not Resolved]
  - Speech disorder [Not Recovered/Not Resolved]
  - Asthma [Not Recovered/Not Resolved]
